FAERS Safety Report 6968965-1 (Version None)
Quarter: 2010Q3

REPORT INFORMATION
  Report Type: 
  Country: None (occurrence: None)
  Receive Date: 20100903
  Receipt Date: 20100903
  Transmission Date: 20110219
  Serious: Yes (Hospitalization)
  Sender: FDA-Public Use
  Company Number: None

PATIENT
  Age: 85 Year
  Sex: Male
  Weight: 62.14 kg

DRUGS (1)
  1. PANTOPRAZOLE [Suspect]
     Indication: GASTROOESOPHAGEAL REFLUX PROPHYLAXIS
     Dosage: 40 MG BID IV
     Route: 042
     Dates: start: 20100316, end: 20100317

REACTIONS (4)
  - HALLUCINATION, VISUAL [None]
  - HEAT RASH [None]
  - LEUKOCYTOSIS [None]
  - RASH MACULO-PAPULAR [None]
